FAERS Safety Report 24006223 (Version 1)
Quarter: 2024Q2

REPORT INFORMATION
  Report Type: Spontaneous
  Country: US (occurrence: None)
  Receive Date: 20240622
  Receipt Date: 20240622
  Transmission Date: 20240715
  Serious: Yes (Hospitalization)
  Sender: FDA-Public Use
  Company Number: None

PATIENT
  Age: 50 Year
  Sex: Male
  Weight: 133 kg

DRUGS (3)
  1. VANCOMYCIN HYDROCHLORIDE [Suspect]
     Active Substance: VANCOMYCIN HYDROCHLORIDE
     Dosage: FREQUENCY : TWICE A DAY;?
     Route: 042
     Dates: start: 20240125, end: 20240202
  2. CEFEPIME HYDROCHLORIDE [Suspect]
     Active Substance: CEFEPIME HYDROCHLORIDE
     Dosage: FREQUENCY : 3 TIMES A DAY;?
     Route: 042
     Dates: start: 20240125
  3. METRONIDAZOLE [Suspect]
     Active Substance: METRONIDAZOLE

REACTIONS (4)
  - Acute kidney injury [None]
  - Gastrointestinal disorder [None]
  - Pulmonary oedema [None]
  - Nephrotic syndrome [None]

NARRATIVE: CASE EVENT DATE: 20240202
